FAERS Safety Report 8054319-6 (Version None)
Quarter: 2012Q1

REPORT INFORMATION
  Report Type: 
  Country: None (occurrence: None)
  Receive Date: 20120118
  Receipt Date: 20120112
  Transmission Date: 20120608
  Serious: Yes (Hospitalization, Other)
  Sender: FDA-Public Use
  Company Number: PHHY2011JP88192

PATIENT
  Age: 84 Year
  Sex: Female

DRUGS (7)
  1. ZOMETA [Suspect]
     Indication: METASTASES TO BONE
     Dosage: 4 MG, EVERY MONTH
     Route: 041
     Dates: start: 20080425, end: 20100604
  2. FEMARA [Concomitant]
     Dosage: 2.5 MG, UNK
     Route: 048
     Dates: start: 20080408, end: 20100712
  3. ROCEPHIN [Concomitant]
     Dosage: 1 G, UNK
     Route: 042
     Dates: start: 20100908, end: 20100909
  4. FARESTON [Concomitant]
     Dosage: 120 MG, UNK
     Route: 048
     Dates: start: 20100713
  5. MEIACT [Concomitant]
     Dosage: 300 UG, UNK
     Route: 048
     Dates: start: 20100910, end: 20100912
  6. AMOXICILLIN [Concomitant]
     Dosage: 750 MG, UNK
     Route: 048
     Dates: start: 20101022
  7. LOXONIN [Concomitant]
     Dosage: 120 MG, UNK
     Route: 048

REACTIONS (12)
  - IMPAIRED HEALING [None]
  - OSTEONECROSIS OF JAW [None]
  - EXPOSED BONE IN JAW [None]
  - STOMATITIS [None]
  - BONE FISTULA [None]
  - TOOTH INFECTION [None]
  - PERIODONTAL INFECTION [None]
  - OSTEOMYELITIS [None]
  - EATING DISORDER [None]
  - WEIGHT DECREASED [None]
  - BONE LESION [None]
  - MOUTH ULCERATION [None]
